FAERS Safety Report 14813510 (Version 2)
Quarter: 2018Q2

REPORT INFORMATION
  Report Type: Spontaneous
  Country: BR (occurrence: BR)
  Receive Date: 20180426
  Receipt Date: 20180614
  Transmission Date: 20180711
  Serious: Yes (Death, Hospitalization, Other)
  Sender: FDA-Public Use
  Company Number: BR-AMGEN-BRASP2018055726

PATIENT
  Age: 59 Year
  Sex: Female

DRUGS (1)
  1. ENBREL [Suspect]
     Active Substance: ETANERCEPT
     Indication: PRODUCT USED FOR UNKNOWN INDICATION
     Dosage: UNK (EVERY 15 DAYS)
     Route: 065

REACTIONS (2)
  - Cerebrovascular accident [Fatal]
  - Product use issue [Unknown]

NARRATIVE: CASE EVENT DATE: 2015
